FAERS Safety Report 12117898 (Version 3)
Quarter: 2016Q2

REPORT INFORMATION
  Report Type: Spontaneous
  Country: US (occurrence: US)
  Receive Date: 20160226
  Receipt Date: 20160404
  Transmission Date: 20160815
  Serious: Yes (Hospitalization, Other)
  Sender: FDA-Public Use
  Company Number: US-AMGEN-USASP2016021090

PATIENT
  Age: 72 Year
  Sex: Female

DRUGS (2)
  1. IMLYGIC [Suspect]
     Active Substance: TALIMOGENE LAHERPAREPVEC
     Indication: MALIGNANT MELANOMA
     Dosage: 106 PFU/ML, UNK
     Route: 065
     Dates: start: 201602
  2. PEMBROLIZUMAB. [Suspect]
     Active Substance: PEMBROLIZUMAB
     Indication: PRODUCT USED FOR UNKNOWN INDICATION
     Dosage: UNK
     Route: 065
     Dates: start: 201602

REACTIONS (9)
  - Eye swelling [Unknown]
  - Malignant melanoma [Unknown]
  - Rash [Unknown]
  - Off label use [Unknown]
  - Swelling [Not Recovered/Not Resolved]
  - Scleral oedema [Unknown]
  - Inflammation [Recovered/Resolved]
  - Contusion [Unknown]
  - Eyelid oedema [Not Recovered/Not Resolved]

NARRATIVE: CASE EVENT DATE: 201602
